FAERS Safety Report 4620864-6 (Version None)
Quarter: 2005Q1

REPORT INFORMATION
  Report Type: 
  Country: None (occurrence: None)
  Receive Date: 20050325
  Receipt Date: 20050318
  Transmission Date: 20050727
  Serious: Yes (Hospitalization)
  Sender: FDA-Public Use
  Company Number: 2005UW04250

PATIENT
  Sex: Male

DRUGS (2)
  1. CRESTOR [Suspect]
  2. TRICOR [Concomitant]

REACTIONS (5)
  - BLOOD CREATINE PHOSPHOKINASE INCREASED [None]
  - EMBOLISM [None]
  - MYOGLOBINURIA [None]
  - PERIPHERAL ARTERY ANEURYSM [None]
  - THROMBOSIS [None]
